FAERS Safety Report 9643774 (Version 1)
Quarter: 2013Q4

REPORT INFORMATION
  Report Type: Spontaneous
  Country: US (occurrence: US)
  Receive Date: 20131024
  Receipt Date: 20131024
  Transmission Date: 20140711
  Serious: Yes (Other)
  Sender: FDA-Public Use
  Company Number: US-PFIZER INC-2013302423

PATIENT
  Age: 56 Year
  Sex: Female
  Weight: 95.24 kg

DRUGS (5)
  1. LYRICA [Suspect]
     Indication: HYPOAESTHESIA
     Dosage: 150 MG, 2X/DAY
     Route: 048
     Dates: start: 201209, end: 201310
  2. LYRICA [Suspect]
     Indication: HYPOAESTHESIA
     Dosage: UNK
  3. LYRICA [Suspect]
     Indication: PARAESTHESIA
  4. LYRICA [Suspect]
     Indication: FIBROMYALGIA
  5. PRISTIQ [Concomitant]
     Dosage: UNK

REACTIONS (12)
  - Off label use [Unknown]
  - Osteomyelitis [Unknown]
  - Foot fracture [Unknown]
  - Ulcer [Unknown]
  - Localised infection [Unknown]
  - Oedema peripheral [Unknown]
  - Suture rupture [Unknown]
  - Weight decreased [Unknown]
  - C-reactive protein increased [Unknown]
  - White blood cell count increased [Unknown]
  - Fibromyalgia [Unknown]
  - Neuropathy peripheral [Unknown]
